FAERS Safety Report 21419985 (Version 1)
Quarter: 2022Q4

REPORT INFORMATION
  Report Type: Spontaneous
  Country: FR (occurrence: FR)
  Receive Date: 20221007
  Receipt Date: 20221007
  Transmission Date: 20230113
  Serious: Yes (Death, Hospitalization, Other)
  Sender: FDA-Public Use
  Company Number: FR-STRIDES ARCOLAB LIMITED-2022SP012712

PATIENT
  Age: 8 Decade

DRUGS (1)
  1. PREDNISOLONE [Suspect]
     Active Substance: PREDNISOLONE
     Indication: Glioblastoma
     Dosage: 20 MILLIGRAM, PER DAY
     Route: 065

REACTIONS (1)
  - COVID-19 pneumonia [Fatal]
